FAERS Safety Report 5051460-7 (Version None)
Quarter: 2006Q3

REPORT INFORMATION
  Report Type: 
  Country: None (occurrence: None)
  Receive Date: 20060710
  Receipt Date: 20060626
  Transmission Date: 20061208
  Serious: Yes (Other)
  Sender: FDA-Public Use
  Company Number: 2006080246

PATIENT
  Age: 41 Year
  Sex: Female
  Weight: 81.6475 kg

DRUGS (12)
  1. REVATIO [Suspect]
     Indication: PULMONARY HYPERTENSION
     Dosage: 60 MG (20 MG, 3 IN  1 D);
     Dates: start: 20060620
  2. MONTELUKAST [Concomitant]
  3. WELLBUTRIN [Concomitant]
  4. TERIPARATIDE [Concomitant]
  5. METHADONE HCL [Concomitant]
  6. XANAX [Concomitant]
  7. BACLOFEN [Concomitant]
  8. POTASSIUM [Concomitant]
  9. MOMETASONE FUROATE [Concomitant]
  10. NEXIUM [Concomitant]
  11. VITAMIN D [Concomitant]
  12. STOOL SOFTENER (DOCUSATE SODIUM) [Concomitant]

REACTIONS (9)
  - AMNESIA [None]
  - CHEST DISCOMFORT [None]
  - CONFUSIONAL STATE [None]
  - DEPRESSED LEVEL OF CONSCIOUSNESS [None]
  - DIZZINESS [None]
  - DYSPNOEA [None]
  - FEELING ABNORMAL [None]
  - HANGOVER [None]
  - LOSS OF CONSCIOUSNESS [None]
